FAERS Safety Report 6334555-7 (Version None)
Quarter: 2009Q3

REPORT INFORMATION
  Report Type: 
  Country: None (occurrence: None)
  Receive Date: 20090831
  Receipt Date: 20090820
  Transmission Date: 20100115
  Serious: Yes (Other)
  Sender: FDA-Public Use
  Company Number: PHHY2009GB23062

PATIENT
  Sex: Female

DRUGS (2)
  1. CLOZARIL [Suspect]
     Indication: SCHIZOPHRENIA, PARANOID TYPE
     Dosage: 350 MG, UNK
  2. VALPROATE SODIUM [Concomitant]
     Indication: EPILEPSY
     Dosage: 700 MG, UNK

REACTIONS (4)
  - BURNING SENSATION [None]
  - CELLULITIS [None]
  - ERYTHEMA [None]
  - SKIN ULCER [None]
